FAERS Safety Report 6168011-6 (Version None)
Quarter: 2009Q2

REPORT INFORMATION
  Report Type: 
  Country: None (occurrence: None)
  Receive Date: 20090427
  Receipt Date: 20090422
  Transmission Date: 20091009
  Serious: Yes (Life-Threatening, Other)
  Sender: FDA-Public Use
  Company Number: JP-ROCHE-576983

PATIENT
  Sex: Female
  Weight: 40 kg

DRUGS (10)
  1. ROCEPHIN [Suspect]
     Indication: CELLULITIS
     Dosage: ROUTE: INTRAVENOUS (NOT OTHERWISE SPECIFIED). SECOND INDICATION: INFECTION.
     Route: 042
     Dates: start: 20080622, end: 20080630
  2. LOXONIN [Suspect]
     Indication: DRUG USE FOR UNKNOWN INDICATION
     Route: 065
  3. FOSAMAX [Concomitant]
     Dosage: DRUG NAME REPORTED  AS: FOSAMAC 5 MG
     Route: 048
     Dates: start: 20030901
  4. CALFINA [Concomitant]
     Route: 048
     Dates: start: 20030901
  5. DIOVAN [Concomitant]
     Route: 048
     Dates: start: 20030901
  6. HERBESSER R [Concomitant]
     Dosage: FORM: SUSTAINED RELEASE CAPSULE.
     Route: 048
     Dates: start: 20030901
  7. ASPARA K [Concomitant]
     Route: 048
     Dates: start: 20030901
  8. PURSENNID [Concomitant]
     Route: 048
     Dates: start: 20030901
  9. XALATAN [Concomitant]
     Dosage: DOSWE FORM: DROPS (INTRAOCULAR)
     Route: 047
     Dates: start: 20030901
  10. LOXONIN [Concomitant]
     Dosage: TAKEN AS NEEDED, NOTE: AMOUNT ON SINGLE USE THE FIRST: 60 MG
     Route: 048
     Dates: start: 20080628, end: 20080630

REACTIONS (3)
  - GASTRITIS HAEMORRHAGIC [None]
  - HAEMATOMA [None]
  - THROMBOCYTOPENIA [None]
